FAERS Safety Report 5400894-7 (Version None)
Quarter: 2007Q3

REPORT INFORMATION
  Report Type: 
  Country: None (occurrence: None)
  Receive Date: 20070730
  Receipt Date: 20070720
  Transmission Date: 20080115
  Serious: No
  Sender: FDA-Public Use
  Company Number: US-BAXTER-2007BH006616

PATIENT
  Age: 19 None
  Sex: Female

DRUGS (3)
  1. FENTANYL CITRATE [Suspect]
     Indication: SPINAL ANAESTHESIA
     Route: 037
     Dates: start: 20060101, end: 20060101
  2. BUPIVACAINE [Concomitant]
     Indication: SPINAL ANAESTHESIA
     Route: 037
     Dates: start: 20060101, end: 20060101
  3. MORPHINE [Concomitant]
     Indication: SPINAL ANAESTHESIA
     Route: 037

REACTIONS (4)
  - ANAESTHETIC COMPLICATION [None]
  - AREFLEXIA [None]
  - DYSPHAGIA [None]
  - HYPOTENSION [None]
